FAERS Safety Report 6143887-7 (Version None)
Quarter: 2009Q2

REPORT INFORMATION
  Report Type: 
  Country: None (occurrence: None)
  Receive Date: 20090406
  Receipt Date: 20080114
  Transmission Date: 20091009
  Serious: Yes (Death, Other)
  Sender: FDA-Public Use
  Company Number: US-ASTRAZENECA-2007UW18158

PATIENT
  Age: 36 Year
  Sex: Female

DRUGS (22)
  1. SEROQUEL [Suspect]
     Indication: BIPOLAR DISORDER
     Route: 048
     Dates: start: 20020101
  2. SEROQUEL [Suspect]
     Route: 048
  3. TORADOL [Concomitant]
  4. HYDROMORPHONE HCL [Concomitant]
  5. MORPHINE SULFATE [Concomitant]
  6. DILANTIN [Concomitant]
  7. METOCLOPRAMIDE [Concomitant]
  8. FENTANYL CITRATE [Concomitant]
  9. GABAPENTIN [Concomitant]
  10. CLONAZEPAM [Concomitant]
  11. LORAZEPAM [Concomitant]
  12. ZIPRASIDONE HCL [Concomitant]
  13. FLUOXETINE [Concomitant]
  14. TRILEPTAL [Concomitant]
  15. LITHIUM CARBONATE [Concomitant]
  16. DIPHENHYDRAMINE HCL [Concomitant]
  17. TYLENOL [Concomitant]
  18. TOPIRAMATE [Concomitant]
  19. ROBITUSSIN DM [Concomitant]
  20. PHENERGAN [Concomitant]
  21. CODEINE SUL TAB [Concomitant]
  22. ONDASETRON [Concomitant]

REACTIONS (8)
  - ANOXIC ENCEPHALOPATHY [None]
  - CARDIO-RESPIRATORY ARREST [None]
  - CHEST PAIN [None]
  - CONVULSION [None]
  - INTERVERTEBRAL DISC DISORDER [None]
  - NEPHROLITHIASIS [None]
  - PANCREATITIS ACUTE [None]
  - PULMONARY EMBOLISM [None]
